FAERS Safety Report 22087747 (Version 1)
Quarter: 2023Q1

REPORT INFORMATION
  Report Type: Other
  Country: FR (occurrence: None)
  Receive Date: 20230313
  Receipt Date: 20230313
  Transmission Date: 20230418
  Serious: Yes (Death, Hospitalization, Other)
  Sender: FDA-Public Use
  Company Number: FR-Square-000133

PATIENT
  Age: 76 Year
  Sex: Female

DRUGS (5)
  1. ACYCLOVIR [Suspect]
     Active Substance: ACYCLOVIR
     Indication: Herpes simplex
     Dosage: 600 MG TID, INTRAVENOUS
     Route: 042
  2. VALGANCICLOVIR [Suspect]
     Active Substance: VALGANCICLOVIR
     Indication: Cytomegalovirus infection
     Dosage: 450MG FOR 48H
  3. MYCOPHENOLIC ACID [Concomitant]
     Active Substance: MYCOPHENOLIC ACID
     Indication: Product used for unknown indication
     Dosage: 500 MG BID
  4. TACROLIMUS [Concomitant]
     Active Substance: TACROLIMUS
     Indication: Product used for unknown indication
     Dosage: 5-7 NG/ML
  5. ACYCLOVIR [Suspect]
     Active Substance: ACYCLOVIR
     Indication: Herpes simplex
     Dosage: 200 MG TID (THRICE A DAY)
     Route: 042

REACTIONS (6)
  - Herpes simplex [Fatal]
  - Neurological symptom [Fatal]
  - Condition aggravated [Fatal]
  - Oesophagitis [Fatal]
  - Acute kidney injury [Fatal]
  - Drug resistance [Fatal]

NARRATIVE: CASE EVENT DATE: 20220221
